FAERS Safety Report 7649041-1 (Version None)
Quarter: 2011Q3

REPORT INFORMATION
  Report Type: 
  Country: None (occurrence: None)
  Receive Date: 20110726
  Receipt Date: 20110712
  Transmission Date: 20111222
  Serious: Yes (Hospitalization)
  Sender: FDA-Public Use
  Company Number: EU-2011-10040

PATIENT
  Age: 75 Year
  Sex: Female

DRUGS (13)
  1. PANTOPRAZOLE [Concomitant]
  2. ASTONIN (FLUDROCORTISONE) [Concomitant]
  3. KALINOR (POTASSIUM CHLORIDE) CAPSULE [Concomitant]
  4. IBUPROFEN [Concomitant]
  5. MINIRIN [Concomitant]
  6. NACL (NACL) [Concomitant]
  7. SAMSCA [Suspect]
     Indication: INAPPROPRIATE ANTIDIURETIC HORMONE SECRETION
     Dosage: 15 MG MILLIGRAM(S), SINGLE, ORAL
     Route: 048
     Dates: start: 20110218, end: 20110219
  8. RINGER (SODIUM CHLORIDE) [Concomitant]
  9. HYDROCHLOROTHIAZIDE [Concomitant]
  10. HYDROCORTONE [Concomitant]
  11. HEPARIN [Concomitant]
  12. NACL (NACL) TABLET [Concomitant]
  13. LEVOTHYROXINE SODIUM [Concomitant]

REACTIONS (3)
  - CONFUSIONAL STATE [None]
  - HYPERTONIA [None]
  - HYPONATRAEMIA [None]
